FAERS Safety Report 15088444 (Version 2)
Quarter: 2018Q4

REPORT INFORMATION
  Report Type: Report from Study
  Country: IT (occurrence: IT)
  Receive Date: 20180629
  Receipt Date: 20181009
  Transmission Date: 20190204
  Serious: Yes (Hospitalization)
  Sender: FDA-Public Use
  Company Number: IT-ROCHE-2143796

PATIENT
  Age: 74 Year
  Sex: Male
  Weight: 69 kg

DRUGS (3)
  1. OLPREZIDE [Concomitant]
     Active Substance: HYDROCHLOROTHIAZIDE\OLMESARTAN MEDOXOMIL
     Indication: HYPERTENSION
     Route: 065
     Dates: start: 2008
  2. VEMURAFENIB. [Suspect]
     Active Substance: VEMURAFENIB
     Indication: MALIGNANT MELANOMA
     Dosage: 11/JUN/2018-DOSE OF VEMUTRAFENIB PRIOR TO SAE
     Route: 048
     Dates: start: 20180601, end: 20180618
  3. COBIMETINIB. [Suspect]
     Active Substance: COBIMETINIB
     Indication: MALIGNANT MELANOMA
     Dosage: 11/JUN/2018-DOSE OF COBIMETINIB PRIOR TO SAE
     Route: 048
     Dates: start: 20180601, end: 20180618

REACTIONS (1)
  - Toxicity to various agents [Recovered/Resolved]

NARRATIVE: CASE EVENT DATE: 20180618
